FAERS Safety Report 20028471 (Version 2)
Quarter: 2021Q4

REPORT INFORMATION
  Report Type: Report from Study
  Country: MX (occurrence: MX)
  Receive Date: 20211103
  Receipt Date: 20211117
  Transmission Date: 20220303
  Serious: Yes (Other)
  Sender: FDA-Public Use
  Company Number: MX-NOVARTISPH-NVSC2021MX231558

PATIENT
  Sex: Female
  Weight: 58 kg

DRUGS (5)
  1. METFORMIN HYDROCHLORIDE\VILDAGLIPTIN [Suspect]
     Active Substance: METFORMIN HYDROCHLORIDE\VILDAGLIPTIN
     Indication: Diabetes mellitus
     Dosage: 1 DF, BID (6 YEARS AGO APPROXIMATELY)
     Route: 048
  2. METFORMIN HYDROCHLORIDE\VILDAGLIPTIN [Suspect]
     Active Substance: METFORMIN HYDROCHLORIDE\VILDAGLIPTIN
     Dosage: 6 DF, QD
     Route: 048
  3. METFORMIN HYDROCHLORIDE\VILDAGLIPTIN [Suspect]
     Active Substance: METFORMIN HYDROCHLORIDE\VILDAGLIPTIN
     Dosage: 1 DF, BID,  8 DAYS AGO (DID NOT KNOW EXACT DATE)
     Route: 048
  4. LEVOTHYROXINE [Concomitant]
     Active Substance: LEVOTHYROXINE
     Indication: Hypothyroidism
     Dosage: 1 DF, QD, 13 YEARS AGO (DID NOT KNOW EXACT DATE)
     Route: 048
  5. FELODIPINO [Concomitant]
     Indication: Hypertension
     Dosage: 1 DF, QD, 15 YEARS AGO (DID NOT KNOW EXACT DATE)
     Route: 048

REACTIONS (8)
  - Infection [Recovered/Resolved]
  - Visual impairment [Not Recovered/Not Resolved]
  - Blood glucose increased [Unknown]
  - Gastritis [Not Recovered/Not Resolved]
  - Blood cholesterol increased [Unknown]
  - Reflux gastritis [Not Recovered/Not Resolved]
  - Arthralgia [Unknown]
  - Off label use [Unknown]
